FAERS Safety Report 6662990-6 (Version None)
Quarter: 2010Q2

REPORT INFORMATION
  Report Type: 
  Country: None (occurrence: None)
  Receive Date: 20100401
  Receipt Date: 20100329
  Transmission Date: 20101027
  Serious: Yes (Death)
  Sender: FDA-Public Use
  Company Number: AR-WYE-H14235410

PATIENT
  Sex: Male
  Weight: 92 kg

DRUGS (3)
  1. TEMSIROLIMUS [Suspect]
     Indication: RENAL CELL CARCINOMA
     Route: 042
     Dates: start: 20100226, end: 20100319
  2. CARVEDILOL [Concomitant]
     Indication: HYPERTENSION
     Dosage: NOT PROVIDED
     Route: 065
     Dates: start: 20090101
  3. BETAHISTINE [Concomitant]
     Indication: DIZZINESS
     Route: 048
     Dates: start: 20080101

REACTIONS (2)
  - HYPERSENSITIVITY [None]
  - INFUSION RELATED REACTION [None]
